FAERS Safety Report 10915644 (Version 1)
Quarter: 2015Q1

REPORT INFORMATION
  Report Type: Spontaneous
  Country: US (occurrence: None)
  Receive Date: 20150311
  Receipt Date: 20150311
  Transmission Date: 20150721
  Serious: Yes (Life-Threatening, Hospitalization)
  Sender: FDA-Public Use
  Company Number: None

PATIENT
  Age: 32 Year
  Sex: Female
  Weight: 36.29 kg

DRUGS (3)
  1. TOPIRAMATE. [Suspect]
     Active Substance: TOPIRAMATE
     Indication: MUSCLE TWITCHING
     Dosage: 2 PILLS TWICE DAILY
     Route: 048
     Dates: start: 20141210, end: 20150129
  2. TOPIRAMATE. [Suspect]
     Active Substance: TOPIRAMATE
     Indication: HEADACHE
     Dosage: 2 PILLS TWICE DAILY
     Route: 048
     Dates: start: 20141210, end: 20150129
  3. FIORACET [Concomitant]
     Active Substance: ACETAMINOPHEN\BUTALBITAL\CAFFEINE

REACTIONS (4)
  - Suicide attempt [None]
  - Suicidal ideation [None]
  - Intentional overdose [None]
  - Feeling of despair [None]

NARRATIVE: CASE EVENT DATE: 20150121
